FAERS Safety Report 4372231-0 (Version None)
Quarter: 2004Q2

REPORT INFORMATION
  Report Type: 
  Country: None (occurrence: None)
  Receive Date: 20040607
  Receipt Date: 20040602
  Transmission Date: 20050107
  Serious: Yes (Death, Hospitalization)
  Sender: FDA-Public Use
  Company Number: US-BRISTOL-MYERS SQUIBB COMPANY-12603916

PATIENT
  Age: 67 Year
  Sex: Female

DRUGS (13)
  1. CETUXIMAB [Suspect]
     Indication: COLORECTAL CANCER
     Dosage: START DATE 16-JAN-2004 (648 MG), 405 MG FROM 23-JAN-204 TO 21-MAY-04 (18 COURSES)
     Route: 042
     Dates: start: 20040521, end: 20040521
  2. COUMADIN [Concomitant]
     Dates: start: 20031101
  3. POTASSIUM [Concomitant]
     Dates: start: 20031201
  4. MAGNESIUM [Concomitant]
     Dates: start: 20031201
  5. ALLOPURINOL [Concomitant]
     Dates: start: 20031101
  6. MULTIVITAMIN [Concomitant]
     Dates: start: 19980101
  7. BENADRYL [Concomitant]
     Dates: start: 20040116, end: 20040521
  8. EXTRA STRENGTH TYLENOL [Concomitant]
     Dates: start: 20040116
  9. AQUAPHOR [Concomitant]
     Dates: start: 20040227
  10. TOPROL-XL [Concomitant]
     Dates: start: 20040312
  11. CLARITIN [Concomitant]
     Dates: start: 20040409
  12. PEPCID [Concomitant]
     Dates: start: 20020101
  13. VASELINE [Concomitant]
     Dates: start: 20040213

REACTIONS (3)
  - DISSEMINATED INTRAVASCULAR COAGULATION [None]
  - POST PROCEDURAL HAEMORRHAGE [None]
  - SMALL INTESTINAL OBSTRUCTION [None]
